FAERS Safety Report 9426491 (Version 1)
Quarter: 2013Q3

REPORT INFORMATION
  Report Type: Spontaneous
  Country: US (occurrence: None)
  Receive Date: 20130729
  Receipt Date: 20130729
  Transmission Date: 20140515
  Serious: No
  Sender: FDA-Public Use
  Company Number: None

PATIENT
  Sex: 0

DRUGS (1)
  1. HUMIRA PEN [Suspect]
     Indication: CROHN^S DISEASE
     Dosage: 1 YEAR, 7 MONTHS, EVERY OTHER WEEK, SQ

REACTIONS (2)
  - Osteonecrosis [None]
  - Crohn^s disease [None]
